FAERS Safety Report 6058265-9 (Version None)
Quarter: 2009Q1

REPORT INFORMATION
  Report Type: 
  Country: None (occurrence: None)
  Receive Date: 20090121
  Receipt Date: 20090121
  Transmission Date: 20090719
  Serious: Yes (Hospitalization)
  Sender: FDA-Public Use
  Company Number: None

PATIENT
  Sex: Male
  Weight: 73.85 kg

DRUGS (1)
  1. CISPLATIN [Suspect]
     Dosage: 388 MG
     Dates: end: 20080227

REACTIONS (2)
  - JAW DISORDER [None]
  - OSTEORADIONECROSIS [None]
